FAERS Safety Report 8017583-5 (Version None)
Quarter: 2012Q1

REPORT INFORMATION
  Report Type: 
  Country: None (occurrence: None)
  Receive Date: 20120103
  Receipt Date: 20111221
  Transmission Date: 20120608
  Serious: Yes (Hospitalization, Other)
  Sender: FDA-Public Use
  Company Number: US-RANBAXY-2011RR-51537

PATIENT
  Sex: Male

DRUGS (39)
  1. PREDNISOLONE [Suspect]
     Dosage: 5 MG, UNK
     Route: 048
     Dates: start: 20060601
  2. PREDNISOLONE [Suspect]
     Dosage: 5 MG, UNK
     Route: 048
     Dates: start: 20090511
  3. PREDNISOLONE [Suspect]
     Dosage: 5 MG, UNK
     Route: 048
     Dates: start: 20090604
  4. LEVAQUIN [Suspect]
     Indication: BACTERIAL INFECTION
  5. PREDNISOLONE [Suspect]
     Dosage: 5 MG, UNK
     Route: 048
     Dates: start: 20080530
  6. PREDNISOLONE [Suspect]
     Dosage: 5 MG, UNK
     Route: 049
     Dates: start: 20081013
  7. PREDNISOLONE [Suspect]
     Dosage: 5 MG, UNK
     Route: 048
     Dates: start: 20051215
  8. PREDNISOLONE [Suspect]
     Dosage: 5 MG, UNK
     Route: 048
     Dates: start: 20070223
  9. PREDNISOLONE [Suspect]
     Dosage: 5 MG, UNK
     Route: 048
     Dates: start: 20071005
  10. PREDNISOLONE [Suspect]
     Dosage: 5 MG, UNK
     Route: 048
     Dates: start: 20071204
  11. PREDNISOLONE [Suspect]
     Dosage: 5 MG, UNK
     Route: 048
     Dates: start: 20080617
  12. PREDNISOLONE [Suspect]
     Dosage: 5 MG, UNK
     Route: 048
     Dates: start: 20090210
  13. CIPROFLOXACIN [Suspect]
     Indication: PROSTATIC SPECIFIC ANTIGEN INCREASED
  14. PREDNISOLONE [Suspect]
     Dosage: 5 MG, UNK
     Route: 048
     Dates: start: 20070319
  15. PREDNISOLONE [Suspect]
     Dosage: 5 MG, UNK
     Route: 048
     Dates: start: 20070612
  16. PREDNISOLONE [Suspect]
     Dosage: 5 MG, UNK
     Route: 048
     Dates: start: 20070806
  17. PREDNISOLONE [Suspect]
     Dosage: 5 MG, UNK
     Route: 048
     Dates: start: 20060612
  18. PREDNISOLONE [Suspect]
     Dosage: 5 MG, UNK
     Route: 048
     Dates: start: 20060713
  19. PREDNISOLONE [Suspect]
     Dosage: 5 MG, UNK
     Route: 048
     Dates: start: 20070510
  20. PREDNISOLONE [Suspect]
     Dosage: 5 MG, UNK
     Route: 048
     Dates: start: 20070707
  21. PREDNISOLONE [Suspect]
     Dosage: 5 MG, UNK
     Route: 048
     Dates: start: 20081111
  22. LEVAQUIN [Suspect]
     Indication: SKIN LESION
     Dosage: 500 MG, UNK
     Route: 048
     Dates: start: 20070914
  23. PREDNISOLONE [Suspect]
     Dosage: 5 MG, UNK
     Route: 048
     Dates: start: 20071114
  24. PREDNISOLONE [Suspect]
     Dosage: 5 MG, UNK
     Route: 048
     Dates: start: 20080213
  25. PREDNISOLONE [Suspect]
     Dosage: 5 MG, UNK
     Route: 048
     Dates: start: 20080516
  26. PREDNISOLONE [Suspect]
     Dosage: 5 MG, UNK
     Route: 048
     Dates: start: 20080815
  27. PREDNISOLONE [Suspect]
     Dosage: 5 MG, UNK
     Route: 048
     Dates: start: 20090720
  28. LEVAQUIN [Suspect]
     Indication: BRONCHITIS
     Dosage: 500 MG, UNK
     Route: 048
     Dates: start: 20090226
  29. LEVAQUIN [Suspect]
     Indication: ABSCESS
     Dosage: 500 MG, UNK
     Route: 048
     Dates: start: 20060822
  30. PREDNISOLONE [Suspect]
     Indication: INFLAMMATION
     Dosage: 5 MG, UNK
     Route: 048
     Dates: start: 20051129
  31. PREDNISOLONE [Suspect]
     Dosage: 5 MG, UNK
     Route: 048
     Dates: start: 20060820
  32. PREDNISOLONE [Suspect]
     Dosage: 5 MG, UNK
     Route: 048
     Dates: start: 20060918
  33. PREDNISOLONE [Suspect]
     Dosage: 5 MG, UNK
     Route: 048
     Dates: start: 20070905
  34. PREDNISOLONE [Suspect]
     Dosage: 5 MG, UNK
     Route: 048
     Dates: start: 20080716
  35. PREDNISOLONE [Suspect]
     Dosage: 5 MG, UNK
     Route: 048
     Dates: start: 20090312
  36. PREDNISOLONE [Suspect]
     Dosage: 5 MG, UNK
     Route: 048
     Dates: start: 20090704
  37. CIPROFLOXACIN [Suspect]
     Indication: RESPIRATORY TRACT CONGESTION
     Dosage: 500 MG, UNK
     Route: 048
     Dates: start: 20060523
  38. PREDNISOLONE [Suspect]
     Dosage: 5 MG, UNK
     Route: 048
     Dates: start: 20080914
  39. PREDNISOLONE [Suspect]
     Dosage: 10 MG, UNK
     Route: 048
     Dates: start: 20090226

REACTIONS (2)
  - ROTATOR CUFF SYNDROME [None]
  - TENDON RUPTURE [None]
